FAERS Safety Report 9337660 (Version 2)
Quarter: 2013Q4

REPORT INFORMATION
  Report Type: Spontaneous
  Country: US (occurrence: US)
  Receive Date: 20130607
  Receipt Date: 20131015
  Transmission Date: 20140711
  Serious: Yes (Other)
  Sender: FDA-Public Use
  Company Number: US-TEVA-410540USA

PATIENT
  Sex: Female
  Weight: 68.1 kg

DRUGS (5)
  1. BACLOFEN [Suspect]
     Indication: MYALGIA
     Dosage: AS NEEDED
     Dates: start: 20130207, end: 20130516
  2. PREGABALIN [Suspect]
     Indication: FIBROMYALGIA
     Dosage: 150 MILLIGRAM DAILY;
     Dates: start: 20130207, end: 201303
  3. LEVOTHYROXINE SODIUM [Concomitant]
     Indication: HYPOTHYROIDISM
     Dosage: 150 MICROGRAM DAILY;
  4. METHOCARBAMOL [Concomitant]
     Indication: MYALGIA
     Dosage: AS NEEDED
     Dates: start: 2013
  5. DURAGESIC [Concomitant]
     Route: 062

REACTIONS (10)
  - Abasia [Recovering/Resolving]
  - Arthralgia [Recovering/Resolving]
  - Swelling [Recovering/Resolving]
  - Ligament pain [Recovering/Resolving]
  - Movement disorder [Recovering/Resolving]
  - Pain [Recovering/Resolving]
  - Urticaria [Recovering/Resolving]
  - Somnolence [Unknown]
  - Fatigue [Unknown]
  - Hypoaesthesia [Unknown]
